FAERS Safety Report 16417102 (Version 1)
Quarter: 2019Q2

REPORT INFORMATION
  Report Type: Spontaneous
  Country: US (occurrence: US)
  Receive Date: 20190611
  Receipt Date: 20190611
  Transmission Date: 20190711
  Serious: Yes (Other)
  Sender: FDA-Public Use
  Company Number: US-PFIZER INC-2019238182

PATIENT

DRUGS (1)
  1. CHAPSTICK TOTAL HYDRATION MOISTURE + TINT (SUNFLOWER OIL) [Suspect]
     Active Substance: SUNFLOWER OIL
     Dosage: UNK

REACTIONS (1)
  - Coeliac disease [Unknown]
